FAERS Safety Report 7877750-8 (Version None)
Quarter: 2011Q4

REPORT INFORMATION
  Report Type: 
  Country: None (occurrence: None)
  Receive Date: 20111031
  Receipt Date: 20111031
  Transmission Date: 20120403
  Serious: Yes (Other)
  Sender: FDA-Public Use
  Company Number: None

PATIENT
  Age: 10 Year
  Sex: Female
  Weight: 84.368 kg

DRUGS (2)
  1. VAZOBID TANNATE SUSPENSION [Suspect]
     Indication: HYPERSENSITIVITY
     Dosage: 1 TSP
     Route: 048
     Dates: start: 20071001, end: 20110911
  2. VAZOBID TANNATE SUSPENSION [Suspect]
     Indication: ASTHMA
     Dosage: 1 TSP
     Route: 048
     Dates: start: 20071001, end: 20110911

REACTIONS (6)
  - HOSTILITY [None]
  - MOOD ALTERED [None]
  - ABNORMAL BEHAVIOUR [None]
  - DEPRESSION [None]
  - PALPITATIONS [None]
  - ANGER [None]
